FAERS Safety Report 11529490 (Version 1)
Quarter: 2015Q3

REPORT INFORMATION
  Report Type: Spontaneous
  Country: US (occurrence: None)
  Receive Date: 20150918
  Receipt Date: 20150918
  Transmission Date: 20151125
  Serious: No
  Sender: FDA-Public Use
  Company Number: None

PATIENT
  Age: 76 Year
  Sex: Female
  Weight: 83.92 kg

DRUGS (6)
  1. TYLENOL [Concomitant]
     Active Substance: ACETAMINOPHEN
  2. BABY ASP [Concomitant]
  3. CARVEDILOL. [Concomitant]
     Active Substance: CARVEDILOL
  4. CEPHALEXIN / GENERIC FOR KEFLEX [Suspect]
     Active Substance: CEPHALEXIN
     Indication: SYNOVIAL CYST
     Dosage: 1 PILLS  3 TIMES A DAY  3 TIMES DAILY  MOUTH
     Route: 048
     Dates: start: 20150624, end: 20150626
  5. HYDROCHLOROTHIAZIDE. [Concomitant]
     Active Substance: HYDROCHLOROTHIAZIDE
  6. MULTI VITAMIN [Concomitant]
     Active Substance: VITAMINS

REACTIONS (7)
  - Oedema peripheral [None]
  - Arthropathy [None]
  - Unevaluable event [None]
  - Skin tightness [None]
  - Product quality issue [None]
  - Rash [None]
  - Skin exfoliation [None]

NARRATIVE: CASE EVENT DATE: 20150624
